FAERS Safety Report 7999485-3 (Version None)
Quarter: 2011Q4

REPORT INFORMATION
  Report Type: 
  Country: None (occurrence: None)
  Receive Date: 20111221
  Receipt Date: 20111216
  Transmission Date: 20120403
  Serious: No
  Sender: FDA-Public Use
  Company Number: US-PFIZER INC-2011306845

PATIENT
  Sex: Female
  Weight: 58.9 kg

DRUGS (1)
  1. CHILDREN'S ADVIL [Suspect]
     Indication: PYREXIA
     Dosage: UNK, 1X/DAY
     Route: 048
     Dates: start: 20111216, end: 20111216

REACTIONS (1)
  - LIP SWELLING [None]
